FAERS Safety Report 9107450 (Version 2)
Quarter: 2013Q1

REPORT INFORMATION
  Report Type: Spontaneous
  Country: IT (occurrence: IT)
  Receive Date: 20130221
  Receipt Date: 20130304
  Transmission Date: 20140127
  Serious: Yes (Other)
  Sender: FDA-Public Use
  Company Number: IT-PFIZER INC-2013065124

PATIENT
  Age: 64 Year
  Sex: Male

DRUGS (10)
  1. MEDROL [Suspect]
     Indication: DERMATITIS
     Dosage: 16 MG, 1X/DAY
     Route: 048
     Dates: start: 20130127, end: 20130130
  2. FUROSEMIDE [Concomitant]
  3. SIMVASTATIN [Concomitant]
     Dosage: 40 MG, UNK
  4. PANTOPRAZOLE SODIUM [Concomitant]
     Dosage: 20 MG, UNK
  5. XATRAL [Concomitant]
  6. SEREUPIN [Concomitant]
  7. ALMARYTM [Concomitant]
  8. AVODART [Concomitant]
  9. MINOCIN [Concomitant]
  10. CARDIRENE [Concomitant]

REACTIONS (4)
  - Confusional state [Recovering/Resolving]
  - Visual impairment [Recovering/Resolving]
  - Nausea [Recovering/Resolving]
  - Tinnitus [Recovering/Resolving]
